FAERS Safety Report 25708431 (Version 1)
Quarter: 2025Q3

REPORT INFORMATION
  Report Type: Spontaneous
  Country: CN (occurrence: CN)
  Receive Date: 20250821
  Receipt Date: 20250821
  Transmission Date: 20251021
  Serious: Yes (Hospitalization)
  Sender: BEIGENE
  Company Number: CN-BEIGENE-BGN-2025-013645

PATIENT
  Age: 62 Year
  Weight: 44 kg

DRUGS (28)
  1. TISLELIZUMAB [Suspect]
     Active Substance: TISLELIZUMAB
     Indication: Adverse event
     Dosage: 200 MILLIGRAM,D1,Q3WK
  2. TISLELIZUMAB [Suspect]
     Active Substance: TISLELIZUMAB
     Dosage: 200 MILLIGRAM,D1,Q3WK
     Route: 041
  3. TISLELIZUMAB [Suspect]
     Active Substance: TISLELIZUMAB
     Dosage: 200 MILLIGRAM,D1,Q3WK
     Route: 041
  4. TISLELIZUMAB [Suspect]
     Active Substance: TISLELIZUMAB
     Dosage: 200 MILLIGRAM,D1,Q3WK
  5. CAPECITABINE [Suspect]
     Active Substance: CAPECITABINE
     Indication: Chemotherapy
     Dosage: 1.5 GRAM, D1-D14, BID, Q3WK
  6. CAPECITABINE [Suspect]
     Active Substance: CAPECITABINE
     Dosage: 1.5 GRAM, D1-D14, BID, Q3WK
  7. CAPECITABINE [Suspect]
     Active Substance: CAPECITABINE
     Dosage: 1.5 GRAM, D1-D14, BID, Q3WK
     Route: 048
  8. CAPECITABINE [Suspect]
     Active Substance: CAPECITABINE
     Dosage: 1.5 GRAM, D1-D14, BID, Q3WK
     Route: 048
  9. CAPECITABINE [Suspect]
     Active Substance: CAPECITABINE
     Dosage: 1.5 GRAM, D1-D14, BID, Q3WK
  10. CAPECITABINE [Suspect]
     Active Substance: CAPECITABINE
     Dosage: 1.5 GRAM, D1-D14, BID, Q3WK
  11. CAPECITABINE [Suspect]
     Active Substance: CAPECITABINE
     Dosage: 1.5 GRAM, D1-D14, BID, Q3WK
     Route: 048
  12. CAPECITABINE [Suspect]
     Active Substance: CAPECITABINE
     Dosage: 1.5 GRAM, D1-D14, BID, Q3WK
     Route: 048
  13. OXALIPLATIN [Suspect]
     Active Substance: OXALIPLATIN
     Indication: Chemotherapy
     Dosage: 180 MILLIGRAM,D1,Q3WK
  14. OXALIPLATIN [Suspect]
     Active Substance: OXALIPLATIN
     Dosage: 180 MILLIGRAM,D1,Q3WK
  15. OXALIPLATIN [Suspect]
     Active Substance: OXALIPLATIN
     Dosage: 180 MILLIGRAM,D1,Q3WK
     Route: 041
  16. OXALIPLATIN [Suspect]
     Active Substance: OXALIPLATIN
     Dosage: 180 MILLIGRAM,D1,Q3WK
     Route: 041
  17. OXALIPLATIN [Suspect]
     Active Substance: OXALIPLATIN
     Dosage: 150 MILLIGRAM,D1,Q3WK
  18. OXALIPLATIN [Suspect]
     Active Substance: OXALIPLATIN
     Dosage: 150 MILLIGRAM,D1,Q3WK
  19. OXALIPLATIN [Suspect]
     Active Substance: OXALIPLATIN
     Dosage: 150 MILLIGRAM,D1,Q3WK
     Route: 041
  20. OXALIPLATIN [Suspect]
     Active Substance: OXALIPLATIN
     Dosage: 150 MILLIGRAM,D1,Q3WK
     Route: 041
  21. OXALIPLATIN [Suspect]
     Active Substance: OXALIPLATIN
     Dosage: 150 MILLIGRAM,D1,Q3WK
  22. OXALIPLATIN [Suspect]
     Active Substance: OXALIPLATIN
     Dosage: 150 MILLIGRAM,D1,Q3WK
     Route: 041
  23. OXALIPLATIN [Suspect]
     Active Substance: OXALIPLATIN
     Dosage: 150 MILLIGRAM,D1,Q3WK
  24. OXALIPLATIN [Suspect]
     Active Substance: OXALIPLATIN
     Dosage: 150 MILLIGRAM,D1,Q3WK
     Route: 041
  25. SODIUM CHLORIDE [Concomitant]
     Active Substance: SODIUM CHLORIDE
     Indication: Vehicle solution use
     Route: 041
  26. SODIUM CHLORIDE [Concomitant]
     Active Substance: SODIUM CHLORIDE
  27. DEXTROSE [Concomitant]
     Active Substance: DEXTROSE MONOHYDRATE
     Indication: Vehicle solution use
     Route: 041
  28. DEXTROSE [Concomitant]
     Active Substance: DEXTROSE MONOHYDRATE

REACTIONS (2)
  - Drug-induced liver injury [Recovering/Resolving]
  - Myelosuppression [Recovering/Resolving]
